FAERS Safety Report 10694959 (Version 2)
Quarter: 2015Q1

REPORT INFORMATION
  Report Type: Spontaneous
  Country: US (occurrence: None)
  Receive Date: 20150105
  Receipt Date: 20150116
  Transmission Date: 20150721
  Serious: Yes (Other)
  Sender: FDA-Public Use
  Company Number: 2014-US-017135

PATIENT
  Sex: Female

DRUGS (1)
  1. XYREM [Suspect]
     Active Substance: SODIUM OXYBATE
     Indication: NARCOLEPSY
     Route: 048
     Dates: start: 201303

REACTIONS (8)
  - Constipation [None]
  - Adrenal insufficiency [None]
  - Hemiplegic migraine [None]
  - Polyuria [None]
  - Proteinuria [None]
  - Pituitary tumour benign [None]
  - Insomnia [None]
  - Rash [None]

NARRATIVE: CASE EVENT DATE: 2014
